FAERS Safety Report 4888482-2 (Version None)
Quarter: 2005Q4

REPORT INFORMATION
  Report Type: 
  Country: None (occurrence: None)
  Receive Date: 20051215
  Receipt Date: 20050524
  Transmission Date: 20060501
  Serious: Yes (Other)
  Sender: FDA-Public Use
  Company Number: 2005079282

PATIENT
  Age: 57 Year
  Sex: Female
  Weight: 90.7194 kg

DRUGS (7)
  1. BEXTRA [Suspect]
     Indication: RHEUMATOID ARTHRITIS
     Dosage: 20 MG (20 MG, 1 IN 1 D), ORAL
     Route: 048
     Dates: end: 20050401
  2. GLUCOVANCE [Concomitant]
  3. AVANDIA [Concomitant]
  4. PROTONIX [Concomitant]
  5. LEXAPRO [Concomitant]
  6. PAXIL [Concomitant]
  7. ELAVIL [Concomitant]

REACTIONS (8)
  - DYSPNOEA [None]
  - FALL [None]
  - HYPERTENSION [None]
  - JOINT INJURY [None]
  - JOINT SWELLING [None]
  - MUSCLE TWITCHING [None]
  - PAIN [None]
  - SLEEP APNOEA SYNDROME [None]
